FAERS Safety Report 14244589 (Version 3)
Quarter: 2017Q4

REPORT INFORMATION
  Report Type: Spontaneous
  Country: JP (occurrence: JP)
  Receive Date: 20171201
  Receipt Date: 20171221
  Transmission Date: 20180321
  Serious: Yes (Other)
  Sender: FDA-Public Use
  Company Number: JP-REGENERON PHARMACEUTICALS, INC.-2017-27881

PATIENT

DRUGS (8)
  1. EYLEA [Suspect]
     Active Substance: AFLIBERCEPT
     Dosage: RIGHT ONCE
     Route: 031
     Dates: start: 20170707, end: 20170707
  2. EYLEA [Suspect]
     Active Substance: AFLIBERCEPT
     Indication: MACULAR OEDEMA
     Dosage: RIGHT, ONCE
     Route: 031
     Dates: start: 20160205, end: 20160205
  3. EYLEA [Suspect]
     Active Substance: AFLIBERCEPT
     Dosage: RIGHT ONCE
     Route: 031
     Dates: start: 20161125, end: 20161125
  4. EYLEA [Suspect]
     Active Substance: AFLIBERCEPT
     Dosage: RIGHT ONCE
     Route: 031
     Dates: start: 20170120, end: 20170120
  5. EYLEA [Suspect]
     Active Substance: AFLIBERCEPT
     Dosage: RIGHT ONCE
     Route: 031
     Dates: start: 20160722, end: 20160722
  6. GATIFLO [Concomitant]
     Active Substance: GATIFLOXACIN
     Indication: PRODUCT USED FOR UNKNOWN INDICATION
  7. EYLEA [Suspect]
     Active Substance: AFLIBERCEPT
     Indication: RETINAL VEIN OCCLUSION
     Dosage: RIGHT ONCE
     Route: 031
     Dates: start: 20160527, end: 20160527
  8. EYLEA [Suspect]
     Active Substance: AFLIBERCEPT
     Dosage: RIGHT ONCE
     Route: 031
     Dates: start: 20170609, end: 20170609

REACTIONS (1)
  - Varicose vein [Recovered/Resolved]

NARRATIVE: CASE EVENT DATE: 201701
